FAERS Safety Report 17158136 (Version 3)
Quarter: 2021Q4

REPORT INFORMATION
  Report Type: Other
  Country: CA (occurrence: CA)
  Receive Date: 20191216
  Receipt Date: 20211006
  Transmission Date: 20220303
  Serious: Yes (Hospitalization, Other)
  Sender: FDA-Public Use
  Company Number: CA-PFIZER INC-2019537005

PATIENT
  Age: 50 Year
  Sex: Female

DRUGS (11)
  1. FLUDARABINE PHOSPHATE [Suspect]
     Active Substance: FLUDARABINE PHOSPHATE
     Indication: Acute myeloid leukaemia
     Dosage: UNK
  2. FLUDARABINE PHOSPHATE [Suspect]
     Active Substance: FLUDARABINE PHOSPHATE
     Dosage: UNK
  3. THYMOCYTE IMMUNE GLOBULIN NOS [Suspect]
     Active Substance: THYMOCYTE IMMUNE GLOBULIN NOS
     Indication: Bone marrow conditioning regimen
     Dosage: UNK
  4. LAPINE T-LYMPHOCYTE IMMUNE GLOBULIN [Suspect]
     Active Substance: LAPINE T-LYMPHOCYTE IMMUNE GLOBULIN
     Indication: Prophylaxis against graft versus host disease
     Dosage: UNK
  5. BUSULFAN [Suspect]
     Active Substance: BUSULFAN
     Indication: Acute myeloid leukaemia
     Dosage: UNK
  6. BUSULFAN [Suspect]
     Active Substance: BUSULFAN
     Dosage: UNK
     Route: 065
  7. CYCLOSPORINE [Suspect]
     Active Substance: CYCLOSPORINE
     Indication: Bone marrow conditioning regimen
     Dosage: UNK
  8. CYCLOSPORINE [Suspect]
     Active Substance: CYCLOSPORINE
     Indication: Prophylaxis against graft versus host disease
     Dosage: UNK
  9. CYCLOPHOSPHAMIDE [Suspect]
     Active Substance: CYCLOPHOSPHAMIDE
     Indication: Bone marrow conditioning regimen
     Dosage: UNK
  10. CYCLOPHOSPHAMIDE [Suspect]
     Active Substance: CYCLOPHOSPHAMIDE
     Indication: Prophylaxis against graft versus host disease
     Dosage: UNK
  11. CYCLOPHOSPHAMIDE [Suspect]
     Active Substance: CYCLOPHOSPHAMIDE
     Dosage: UNK

REACTIONS (20)
  - BK virus infection [Recovering/Resolving]
  - Catheter site infection [Recovering/Resolving]
  - Cystitis haemorrhagic [Recovering/Resolving]
  - Cytomegalovirus infection [Recovering/Resolving]
  - Disseminated tuberculosis [Recovering/Resolving]
  - Dyspnoea [Recovering/Resolving]
  - Human polyomavirus infection [Recovering/Resolving]
  - Fatigue [Recovering/Resolving]
  - Haematuria [Recovering/Resolving]
  - Hilar lymphadenopathy [Recovering/Resolving]
  - Lung consolidation [Recovering/Resolving]
  - Lymphadenopathy mediastinal [Recovering/Resolving]
  - Pancytopenia [Recovering/Resolving]
  - Pleural effusion [Recovering/Resolving]
  - Pyrexia [Recovering/Resolving]
  - Respiratory distress [Recovering/Resolving]
  - Skin lesion [Recovering/Resolving]
  - Staphylococcal infection [Recovering/Resolving]
  - Viral haemorrhagic cystitis [Recovering/Resolving]
  - Off label use [Recovering/Resolving]
